FAERS Safety Report 19266949 (Version 2)
Quarter: 2022Q1

REPORT INFORMATION
  Report Type: Spontaneous
  Country: DE (occurrence: DE)
  Receive Date: 20210518
  Receipt Date: 20220309
  Transmission Date: 20220423
  Serious: Yes (Hospitalization, Other)
  Sender: FDA-Public Use
  Company Number: DE-002147023-NVSC2020DE308613

PATIENT
  Sex: Male
  Weight: 85 kg

DRUGS (21)
  1. MIDAZOLAM [Suspect]
     Active Substance: MIDAZOLAM
     Indication: Product used for unknown indication
     Dosage: UNK
     Route: 065
  2. VALSARTAN [Suspect]
     Active Substance: VALSARTAN
     Indication: Hypertension
     Dosage: 1 DOSAGE FORM, ONCE A DAY
     Route: 065
     Dates: start: 201211, end: 2018
  3. DIOVAN [Suspect]
     Active Substance: VALSARTAN
     Indication: Hypertension
     Dosage: 1 DOSAGE FORM, ONCE A DAY IN THE MORNING
     Route: 065
     Dates: start: 201211
  4. DIOVAN [Suspect]
     Active Substance: VALSARTAN
     Dosage: 1 DOSAGE FORM, ONCE A DAYIN THE MORNING
     Route: 065
     Dates: start: 201812
  5. Jonosteril [Concomitant]
     Indication: Product used for unknown indication
     Dosage: 500 MILLILITER,60 ML/H, DURING SURGERY FOR INCISIONAL HERNIA
     Route: 041
     Dates: start: 20190625, end: 20190625
  6. METAMIZOLE [Concomitant]
     Active Substance: METAMIZOLE
     Indication: Product used for unknown indication
     Dosage: 5 G IN 50 ML 2 ML/H (0.2 G/H)
     Route: 042
     Dates: start: 20190625
  7. CEFTRIAXONE [Concomitant]
     Active Substance: CEFTRIAXONE
     Indication: Product used for unknown indication
     Dosage: 2 GRAM, DURING SURGERY FOR INCISIONAL HERNIA
     Route: 041
     Dates: start: 20190625, end: 20190625
  8. METAMIZOLE [Concomitant]
     Active Substance: METAMIZOLE
     Indication: Product used for unknown indication
     Dosage: 3 DOSAGE FORM, ONCE A DAY
     Route: 065
     Dates: start: 20190628, end: 20190629
  9. CANDESARTAN [Concomitant]
     Active Substance: CANDESARTAN
     Indication: Product used for unknown indication
     Dosage: 1X16, 1X DAILY (MORNING)
     Route: 065
  10. ROCURONIUM [Concomitant]
     Active Substance: ROCURONIUM BROMIDE
     Indication: Product used for unknown indication
     Dosage: UNK
     Route: 042
     Dates: start: 20190625, end: 20190625
  11. FENTANYL [Concomitant]
     Active Substance: FENTANYL
     Indication: Product used for unknown indication
     Dosage: UNK, DURING SURGERY FOR INCISIONAL HERNIA
     Route: 042
     Dates: start: 20190625, end: 20190625
  12. PIRITRAMIDE [Concomitant]
     Active Substance: PIRITRAMIDE
     Indication: Product used for unknown indication
     Dosage: UNK, DURING SURGERY FOR INCISIONAL HERNIA
     Route: 042
     Dates: start: 20190625, end: 20190625
  13. LIDOCAINE [Concomitant]
     Active Substance: LIDOCAINE
     Indication: Product used for unknown indication
     Dosage: 2 PERCENT, UNKNOWN
     Route: 042
     Dates: start: 20190625, end: 20190625
  14. PANTOZOL [Concomitant]
     Active Substance: PANTOPRAZOLE SODIUM
     Indication: Product used for unknown indication
     Dosage: 1 DOSAGE FORM, ONCE A DAY
     Route: 065
     Dates: start: 20190628, end: 20190629
  15. REMIFENTANIL [Concomitant]
     Active Substance: REMIFENTANIL
     Indication: Product used for unknown indication
     Dosage: UNK
     Route: 041
     Dates: start: 20190625, end: 20190625
  16. PROPOFOL [Concomitant]
     Active Substance: PROPOFOL
     Indication: Product used for unknown indication
     Dosage: 2 PERCENT
     Route: 065
     Dates: start: 20190625, end: 20190625
  17. LERCANIDIPIN-HCL AL [Concomitant]
     Indication: Hypertension
     Dosage: 1 DOSAGE FORM, ONCE A DAY (MORNING)
     Route: 065
     Dates: end: 201906
  18. LERCANIDIPIN-HCL AL [Concomitant]
     Dosage: 0.5 DOSAGE FORM, ONCE A DAY (MORNING)
     Route: 065
     Dates: end: 201906
  19. LERCANIDIPIN-HCL AL [Concomitant]
     Dosage: 1 DOSAGE FORM, ONCE A DAY  (MORNING)
     Route: 065
  20. ENOXAPARIN SODIUM [Concomitant]
     Active Substance: ENOXAPARIN SODIUM
     Indication: Product used for unknown indication
     Dosage: 1 DOSAGE FORM, ONCE A DAY
     Route: 065
     Dates: start: 20190626, end: 20190629
  21. CAFFEDRINE [Concomitant]
     Indication: Product used for unknown indication
     Dosage: UNK
     Route: 065
     Dates: start: 20190625, end: 20190625

REACTIONS (18)
  - Incisional hernia [Recovered/Resolved]
  - Urethral injury [Recovered/Resolved]
  - Urinary incontinence [Recovered/Resolved]
  - Renal oncocytoma [Unknown]
  - Benign prostatic hyperplasia [Recovered/Resolved]
  - Urethral stenosis [Unknown]
  - Hypertension [Recovered/Resolved]
  - Atrial fibrillation [Unknown]
  - Dysuria [Recovered/Resolved]
  - Paradoxical drug reaction [Unknown]
  - Inflammation [Recovered/Resolved]
  - Inguinal hernia [Unknown]
  - Gastrooesophageal reflux disease [Unknown]
  - Body temperature increased [Recovered/Resolved]
  - Haemorrhoids [Unknown]
  - Haemangioma of liver [Unknown]
  - Anal prolapse [Unknown]
  - Sleep apnoea syndrome [Unknown]

NARRATIVE: CASE EVENT DATE: 20160701
